FAERS Safety Report 10305728 (Version 2)
Quarter: 2014Q3

REPORT INFORMATION
  Report Type: Spontaneous
  Country: AR (occurrence: AR)
  Receive Date: 20140715
  Receipt Date: 20140825
  Transmission Date: 20150326
  Serious: Yes (Other)
  Sender: FDA-Public Use
  Company Number: AR-PFIZER INC-2014194359

PATIENT
  Age: 64 Year
  Sex: Male

DRUGS (1)
  1. INLYTA [Suspect]
     Active Substance: AXITINIB
     Indication: RENAL CANCER
     Dosage: 15 MG, CYCLIC (SCHEME 20 DAYS ON/ 10 DAYS OFF)
     Dates: start: 20130823

REACTIONS (4)
  - Haematuria [Recovering/Resolving]
  - Asthenia [Recovering/Resolving]
  - Hepatitis toxic [Not Recovered/Not Resolved]
  - Productive cough [Not Recovered/Not Resolved]

NARRATIVE: CASE EVENT DATE: 20140628
